FAERS Safety Report 14483089 (Version 1)
Quarter: 2018Q1

REPORT INFORMATION
  Report Type: Spontaneous
  Country: US (occurrence: US)
  Receive Date: 20180203
  Receipt Date: 20180203
  Transmission Date: 20180509
  Serious: Yes (Hospitalization, Other)
  Sender: FDA-Public Use
  Company Number: US-BRISTOL-MYERS SQUIBB COMPANY-BMS-2018-007753

PATIENT
  Age: 68 Year
  Sex: Male
  Weight: 64.4 kg

DRUGS (2)
  1. OPDIVO [Suspect]
     Active Substance: NIVOLUMAB
     Indication: MALIGNANT MELANOMA
     Dosage: UNK
     Route: 042
     Dates: start: 2017
  2. YERVOY [Suspect]
     Active Substance: IPILIMUMAB
     Indication: MALIGNANT MELANOMA
     Dosage: UNK
     Route: 042
     Dates: start: 2017

REACTIONS (12)
  - Brain oedema [Unknown]
  - Incoherent [Unknown]
  - Diarrhoea [Unknown]
  - Pyrexia [Unknown]
  - Weight decreased [Unknown]
  - Dehydration [Unknown]
  - Pruritus [Unknown]
  - Tremor [Unknown]
  - Fatigue [Unknown]
  - Decreased appetite [Unknown]
  - Hospitalisation [Unknown]
  - Rash [Unknown]

NARRATIVE: CASE EVENT DATE: 20180122
